FAERS Safety Report 17787811 (Version 1)
Quarter: 2020Q2

REPORT INFORMATION
  Report Type: Spontaneous
  Country: US (occurrence: US)
  Receive Date: 20200514
  Receipt Date: 20200514
  Transmission Date: 20200714
  Serious: No
  Sender: FDA-Public Use
  Company Number: US-PERRIGO-19US008843

PATIENT
  Age: 71 Year
  Sex: Female

DRUGS (2)
  1. TRIAMCINOLONE ACETONIDE. [Suspect]
     Active Substance: TRIAMCINOLONE ACETONIDE
     Indication: VULVOVAGINAL PRURITUS
     Dosage: SMALL APPLICATION, BID
     Route: 061
     Dates: start: 20190622
  2. TRIAMCINOLONE ACETONIDE. [Suspect]
     Active Substance: TRIAMCINOLONE ACETONIDE
     Indication: VULVOVAGINAL DRYNESS
     Dosage: SMALL APPLICATION, BID
     Route: 061
     Dates: start: 20190524, end: 2019

REACTIONS (2)
  - Breast tenderness [Recovering/Resolving]
  - Joint swelling [Not Recovered/Not Resolved]

NARRATIVE: CASE EVENT DATE: 201905
